FAERS Safety Report 7605086-9 (Version None)
Quarter: 2011Q3

REPORT INFORMATION
  Report Type: 
  Country: None (occurrence: None)
  Receive Date: 20110713
  Receipt Date: 20091009
  Transmission Date: 20111222
  Serious: Yes (Other)
  Sender: FDA-Public Use
  Company Number: US-BAYER-200935498NA

PATIENT
  Age: 62 Year
  Sex: Male
  Weight: 90.703 kg

DRUGS (26)
  1. ATENOLOL [Concomitant]
     Indication: PRODUCT USED FOR UNKNOWN INDICATION
     Dosage: 50 MG, UNK
     Route: 048
  2. FENTANYL-100 [Concomitant]
     Indication: PRODUCT USED FOR UNKNOWN INDICATION
     Dosage: UNK
     Route: 042
     Dates: start: 20041211, end: 20041211
  3. ETOMIDATE [Concomitant]
     Indication: PRODUCT USED FOR UNKNOWN INDICATION
     Dosage: UNK
     Route: 042
     Dates: start: 20041211, end: 20041211
  4. BEXTRA [Concomitant]
     Indication: PRODUCT USED FOR UNKNOWN INDICATION
     Dosage: 20 MG, UNK
     Route: 048
  5. NITROGLYCERIN [Concomitant]
     Indication: PRODUCT USED FOR UNKNOWN INDICATION
     Dosage: 1 INCH
     Route: 061
     Dates: start: 20041209
  6. HEPARIN [Concomitant]
     Indication: PRODUCT USED FOR UNKNOWN INDICATION
     Dosage: 35000 U, UNK
     Dates: start: 20041211, end: 20041211
  7. LIDOCAINE [Concomitant]
     Indication: PRODUCT USED FOR UNKNOWN INDICATION
     Dosage: 100 MG, UNK
     Route: 042
     Dates: start: 20041211, end: 20041211
  8. MAGNESIUM [Concomitant]
     Indication: PRODUCT USED FOR UNKNOWN INDICATION
     Dosage: 12 G, UNK
     Route: 042
     Dates: start: 20041211, end: 20041211
  9. CALCIUM CHLORIDE [Concomitant]
     Indication: PRODUCT USED FOR UNKNOWN INDICATION
     Dosage: UNK
     Route: 042
     Dates: start: 20041211, end: 20041211
  10. PLASMA [Concomitant]
     Indication: PRODUCT USED FOR UNKNOWN INDICATION
     Dosage: 1520 CC
     Route: 042
     Dates: start: 20041211
  11. VECURONIUM BROMIDE [Concomitant]
     Indication: PRODUCT USED FOR UNKNOWN INDICATION
     Dosage: UNK
     Route: 042
     Dates: start: 20041211, end: 20041211
  12. RED BLOOD CELLS [Concomitant]
     Indication: PRODUCT USED FOR UNKNOWN INDICATION
     Dosage: 650 CC
     Route: 042
     Dates: start: 20041211
  13. TRASYLOL [Suspect]
     Dosage: 50 CC PER HOUR
     Route: 042
     Dates: start: 20041211, end: 20041211
  14. PLATELETS [Concomitant]
     Indication: PRODUCT USED FOR UNKNOWN INDICATION
     Dosage: 1528 CC
     Route: 042
     Dates: start: 20041211
  15. VANCOMYCIN [Concomitant]
  16. LOVENOX [Concomitant]
     Indication: PRODUCT USED FOR UNKNOWN INDICATION
     Dosage: 80 MG, UNK
     Route: 058
     Dates: start: 20041209
  17. FORANE [Concomitant]
     Indication: PRODUCT USED FOR UNKNOWN INDICATION
     Dosage: UNK
     Route: 042
     Dates: start: 20041211, end: 20041211
  18. VERSED [Concomitant]
     Indication: PRODUCT USED FOR UNKNOWN INDICATION
     Dosage: UNK
     Dates: start: 20041211, end: 20041211
  19. PROTAMINE SULFATE [Concomitant]
     Indication: PRODUCT USED FOR UNKNOWN INDICATION
     Dosage: 350 MG, UNK
     Route: 042
     Dates: start: 20041211, end: 20041211
  20. TRASYLOL [Suspect]
     Dosage: 200 CC LOADING DOSE
     Route: 042
     Dates: start: 20041211, end: 20041211
  21. NITROGLYCERIN [Concomitant]
     Indication: PRODUCT USED FOR UNKNOWN INDICATION
     Dosage: UNK
     Route: 042
     Dates: start: 20041211, end: 20041211
  22. TRASYLOL [Suspect]
     Indication: PRODUCT USED FOR UNKNOWN INDICATION
     Dosage: 200 CC PUMP PRIME
     Route: 042
     Dates: start: 20041211, end: 20041211
  23. TRASYLOL [Suspect]
  24. ACETYLSALICYLIC ACID SRT [Concomitant]
     Indication: PRODUCT USED FOR UNKNOWN INDICATION
     Dosage: 81 MG, QD
     Route: 048
  25. MANNITOL [Concomitant]
     Indication: PRODUCT USED FOR UNKNOWN INDICATION
     Dosage: 12.5 G, UNK
     Route: 042
     Dates: start: 20041211, end: 20041211
  26. RIFAMPIN [Concomitant]

REACTIONS (12)
  - RENAL IMPAIRMENT [None]
  - RENAL FAILURE [None]
  - INJURY [None]
  - MULTI-ORGAN FAILURE [None]
  - STRESS [None]
  - ANXIETY [None]
  - FEAR [None]
  - UNEVALUABLE EVENT [None]
  - ANHEDONIA [None]
  - RENAL INJURY [None]
  - EMOTIONAL DISTRESS [None]
  - PAIN [None]
